FAERS Safety Report 5803933-4 (Version None)
Quarter: 2008Q3

REPORT INFORMATION
  Report Type: 
  Country: None (occurrence: None)
  Receive Date: 20080708
  Receipt Date: 20080626
  Transmission Date: 20090109
  Serious: Yes (Other)
  Sender: FDA-Public Use
  Company Number: US-PFIZER INC-2008054191

PATIENT
  Sex: Female
  Weight: 70.3 kg

DRUGS (7)
  1. LYRICA [Suspect]
     Indication: FIBROMYALGIA
  2. ESTRACE [Concomitant]
  3. LIPITOR [Concomitant]
  4. METOPROLOL SUCCINATE [Concomitant]
  5. AMITRIPTYLINE HCL [Concomitant]
  6. CARISOPRODOL [Concomitant]
  7. MORPHINE [Concomitant]

REACTIONS (7)
  - ARTHRALGIA [None]
  - DIZZINESS [None]
  - FALL [None]
  - HEADACHE [None]
  - IMPAIRED DRIVING ABILITY [None]
  - INTENTIONAL DRUG MISUSE [None]
  - SOMNOLENCE [None]
